FAERS Safety Report 18575138 (Version 1)
Quarter: 2020Q4

REPORT INFORMATION
  Report Type: Spontaneous
  Country: BE (occurrence: BE)
  Receive Date: 20201203
  Receipt Date: 20201203
  Transmission Date: 20210114
  Serious: Yes (Hospitalization)
  Sender: FDA-Public Use
  Company Number: BE-PFIZER INC-2020472732

PATIENT
  Age: 73 Year
  Sex: Male

DRUGS (1)
  1. LEDERTREXATE [Suspect]
     Active Substance: METHOTREXATE
     Indication: RHEUMATIC DISORDER
     Dosage: 3 ON MONDAY MORNING, 3 ON FRIDAY EVENING
     Dates: start: 2000

REACTIONS (4)
  - Dyspnoea [Unknown]
  - Off label use [Unknown]
  - Insomnia [Unknown]
  - Sarcoidosis [Unknown]

NARRATIVE: CASE EVENT DATE: 2000
